FAERS Safety Report 5010987-4 (Version None)
Quarter: 2006Q2

REPORT INFORMATION
  Report Type: 
  Country: None (occurrence: None)
  Receive Date: 20060523
  Receipt Date: 20060314
  Transmission Date: 20061013
  Serious: Yes (Death)
  Sender: FDA-Public Use
  Company Number: T200600265

PATIENT
  Age: 44 Year

DRUGS (3)
  1. BUTALBITAL, ACETAMINOPHEN, CAFFEINE (BUTALBITAL, ACETAMINOPHEN, CAFFEI [Suspect]
  2. MIRTAZAPINE [Suspect]
  3. TRAZODONE HCL [Suspect]

REACTIONS (1)
  - COMPLETED SUICIDE [None]
